FAERS Safety Report 7018373-2 (Version None)
Quarter: 2010Q3

REPORT INFORMATION
  Report Type: 
  Country: None (occurrence: None)
  Receive Date: 20100928
  Receipt Date: 20100915
  Transmission Date: 20110219
  Serious: Yes (Hospitalization, Disabling, Other)
  Sender: FDA-Public Use
  Company Number: PHEH2007US02881

PATIENT
  Sex: Female

DRUGS (11)
  1. ZOMETA [Suspect]
     Dosage: 4 MG, QMO
     Route: 042
     Dates: start: 20030101, end: 20060901
  2. ARIMIDEX [Concomitant]
  3. TAMOXIFEN CITRATE [Concomitant]
  4. XELODA [Concomitant]
     Dosage: UNK
     Dates: start: 20060801, end: 20061001
  5. MORPHINE [Concomitant]
  6. VICODIN [Concomitant]
  7. DOXIL [Concomitant]
  8. GABAPENTIN [Concomitant]
  9. ONDANSETRON [Concomitant]
  10. PACLITAXEL [Concomitant]
  11. PROCHLORPERAZINE [Concomitant]

REACTIONS (38)
  - ALTERED STATE OF CONSCIOUSNESS [None]
  - ANAEMIA [None]
  - ANXIETY [None]
  - ARTHRALGIA [None]
  - ARTHRITIS [None]
  - BACK PAIN [None]
  - BONE GRAFT [None]
  - CELLULITIS [None]
  - CENTRAL VENOUS CATHETERISATION [None]
  - CHOLELITHIASIS [None]
  - COMA [None]
  - DECREASED INTEREST [None]
  - GENERAL PHYSICAL HEALTH DETERIORATION [None]
  - HERPES ZOSTER [None]
  - ILEUS PARALYTIC [None]
  - INCOHERENT [None]
  - INFLAMMATION [None]
  - MALIGNANT NEOPLASM PROGRESSION [None]
  - METASTASES TO BONE [None]
  - METASTASES TO LIVER [None]
  - METASTASES TO SKIN [None]
  - NEPHROLITHIASIS [None]
  - NEUROPATHY PERIPHERAL [None]
  - NEUTROPENIA [None]
  - ORTHOSTATIC HYPOTENSION [None]
  - OSTEOARTHRITIS [None]
  - OSTEONECROSIS OF JAW [None]
  - PAIN [None]
  - PAIN IN JAW [None]
  - PERIODONTAL OPERATION [None]
  - POSTMENOPAUSAL HAEMORRHAGE [None]
  - SEBORRHOEIC KERATOSIS [None]
  - SEROLOGY ABNORMAL [None]
  - SINUS TACHYCARDIA [None]
  - TOOTH INFECTION [None]
  - UROSEPSIS [None]
  - UTERINE LEIOMYOMA [None]
  - WEIGHT DECREASED [None]
